FAERS Safety Report 9092460 (Version 1)
Quarter: 2013Q1

REPORT INFORMATION
  Report Type: Report from Study
  Country: US (occurrence: US)
  Receive Date: 20130131
  Receipt Date: 20130131
  Transmission Date: 20140127
  Serious: No
  Sender: FDA-Public Use
  Company Number: US-ABBOTT-12P-163-1002965-00

PATIENT
  Sex: Female
  Weight: 62.65 kg

DRUGS (2)
  1. HUMIRA [Suspect]
     Indication: PSORIASIS
     Dates: start: 201109, end: 201203
  2. HUMIRA [Suspect]
     Dates: start: 201203

REACTIONS (2)
  - Herpes zoster [Unknown]
  - Psoriasis [Recovering/Resolving]
